FAERS Safety Report 15076797 (Version 1)
Quarter: 2018Q2

REPORT INFORMATION
  Report Type: Spontaneous
  Country: ZA (occurrence: ZA)
  Receive Date: 20180627
  Receipt Date: 20180627
  Transmission Date: 20180711
  Serious: Yes (Death, Other)
  Sender: FDA-Public Use
  Company Number: ZA-PFIZER INC-2018255718

PATIENT
  Age: 65 Year
  Sex: Male

DRUGS (7)
  1. ADCO-SIMVASTATIN [Suspect]
     Active Substance: SIMVASTATIN
     Dosage: UNK
  2. LUMIGAN [Suspect]
     Active Substance: BIMATOPROST
     Dosage: UNK
  3. LOMANOR [Suspect]
     Active Substance: AMLODIPINE BESYLATE
     Dosage: UNK
  4. LONITEN [Suspect]
     Active Substance: MINOXIDIL
     Dosage: UNK
  5. LYRICA [Suspect]
     Active Substance: PREGABALIN
     Dosage: UNK
  6. ZARTAN [Suspect]
     Active Substance: LOSARTAN POTASSIUM
     Dosage: UNK
  7. PEARINDA [Suspect]
     Active Substance: PERINDOPRIL ERBUMINE
     Dosage: UNK

REACTIONS (1)
  - Death [Fatal]
